FAERS Safety Report 15372910 (Version 1)
Quarter: 2018Q3

REPORT INFORMATION
  Report Type: Spontaneous
  Country: US (occurrence: US)
  Receive Date: 20180912
  Receipt Date: 20180912
  Transmission Date: 20181010
  Serious: No
  Sender: FDA-Public Use
  Company Number: US-TEVA-2018-US-952919

PATIENT
  Sex: Male

DRUGS (1)
  1. AMPHETAMINE [Suspect]
     Active Substance: AMPHETAMINE
     Indication: ATTENTION DEFICIT/HYPERACTIVITY DISORDER

REACTIONS (7)
  - Pruritus [Unknown]
  - Drug effect incomplete [Unknown]
  - Lethargy [Unknown]
  - Fatigue [Unknown]
  - Urticaria [Unknown]
  - Vision blurred [Unknown]
  - Anxiety [Unknown]
